FAERS Safety Report 24395584 (Version 1)
Quarter: 2024Q4

REPORT INFORMATION
  Report Type: Other
  Country: GB (occurrence: GB)
  Receive Date: 20241004
  Receipt Date: 20241004
  Transmission Date: 20250114
  Serious: Yes (Other)
  Sender: STRIDES
  Company Number: None

PATIENT
  Age: 79 Year
  Sex: Female
  Weight: 93 kg

DRUGS (25)
  1. PREDNISOLONE [Suspect]
     Active Substance: PREDNISOLONE
     Indication: Ill-defined disorder
     Dosage: UNK (TABLET)
     Route: 065
     Dates: start: 20240415
  2. RYBELSUS [Concomitant]
     Active Substance: SEMAGLUTIDE
     Indication: Ill-defined disorder
     Dosage: UNK, QD (TAKE ONE DAILY)
     Route: 065
     Dates: start: 20240808
  3. AMITRIPTYLINE HYDROCHLORIDE [Concomitant]
     Active Substance: AMITRIPTYLINE HYDROCHLORIDE
     Indication: Ill-defined disorder
     Dosage: UNK, AT BED TIME (TAKE 1- 3 TO BE TAKEN EACH NIGHT)
     Route: 065
     Dates: start: 20200310
  4. GABAPENTIN [Concomitant]
     Active Substance: GABAPENTIN
     Indication: Ill-defined disorder
     Dosage: UNK, TAKE ONE UP TO 3 TIMES/DAY
     Route: 065
     Dates: start: 20240913
  5. TRAMADOL [Concomitant]
     Active Substance: TRAMADOL
     Indication: Ill-defined disorder
     Dosage: UNK, PRN (TAKE ONE CAPSULE EVERY 4 TO 6 HOURS WHEN REQUIR...)
     Route: 065
     Dates: start: 20200310
  6. FERROUS SULFATE [Concomitant]
     Active Substance: FERROUS SULFATE
     Indication: Ill-defined disorder
     Dosage: UNK, QD (EVERY DAY)
     Route: 065
     Dates: start: 20240923
  7. ALBUTEROL [Concomitant]
     Active Substance: ALBUTEROL
     Indication: Ill-defined disorder
     Dosage: UNK, PRN (INHALE 2 DOSES AS NEEDED)
     Dates: start: 20010509
  8. MONTELUKAST [Concomitant]
     Active Substance: MONTELUKAST
     Indication: Ill-defined disorder
     Dosage: UNK, QD (ONE TO BE TAKEN DAILY)
     Route: 065
     Dates: start: 20050125
  9. LOPERAMIDE [Concomitant]
     Active Substance: LOPERAMIDE
     Indication: Ill-defined disorder
     Dosage: UNK, PRN (AS DIRECTED)
     Route: 065
     Dates: start: 20071106
  10. LORATADINE [Concomitant]
     Active Substance: LORATADINE
     Indication: Ill-defined disorder
     Dosage: UNK, QD (TAKE ONE DAILY)
     Route: 065
     Dates: start: 20090303
  11. OXYBUTYNIN [Concomitant]
     Active Substance: OXYBUTYNIN
     Indication: Ill-defined disorder
     Dosage: UNK (1 MORNING 2 EACH NIGHT)
     Route: 065
     Dates: start: 20090930
  12. INSULIN HUMAN [Concomitant]
     Active Substance: INSULIN HUMAN
     Indication: Ill-defined disorder
     Dosage: UNK, PRN (USE AS DIRECTED)
     Route: 065
     Dates: start: 20101104
  13. CANDESARTAN [Concomitant]
     Active Substance: CANDESARTAN
     Indication: Ill-defined disorder
     Dosage: UNK, OD (TAKE ONE ONCE DAILY)
     Route: 065
     Dates: start: 20140315
  14. FELODIPINE [Concomitant]
     Active Substance: FELODIPINE
     Indication: Ill-defined disorder
     Dosage: UNK, QD (TAKE ONE D)AILY
     Route: 065
     Dates: start: 20140528
  15. LEVOTHYROXINE [Concomitant]
     Active Substance: LEVOTHYROXINE
     Indication: Ill-defined disorder
     Dosage: UNK, QD (ONE TO BE TAKEN DAILY)
     Route: 065
     Dates: start: 20150220
  16. ATORVASTATIN [Concomitant]
     Active Substance: ATORVASTATIN
     Indication: Ill-defined disorder
     Dosage: UNK, QD (TAKE ONE DAILY AT NIGHT)
     Route: 065
     Dates: start: 20180531
  17. CALCIUM CARBONATE\CHOLECALCIFEROL [Concomitant]
     Active Substance: CALCIUM CARBONATE\CHOLECALCIFEROL
     Indication: Ill-defined disorder
     Dosage: UNK (ONE TO BE SWALLOWED WHOLE EACH LUNCHTIME AND TE...)
     Route: 048
     Dates: start: 20190111
  18. DOXYCYCLINE [Concomitant]
     Active Substance: DOXYCYCLINE
     Indication: Ill-defined disorder
     Dosage: UNK (TAKE TWO CAPSULES NOW AND THEN TAKE ONE CAPSULE...)
     Route: 065
     Dates: start: 20190709
  19. PREDNISOLONE [Concomitant]
     Active Substance: PREDNISOLONE
     Indication: Ill-defined disorder
     Dosage: UNK, QD (TAKE SIX DAILY FOR 5 DAYS-AS RESCUE FOR CHEST F...)
     Route: 065
     Dates: start: 20190709
  20. CYANOCOBALAMIN [Concomitant]
     Active Substance: CYANOCOBALAMIN
     Indication: Ill-defined disorder
     Dosage: UNK, QD (TAKE ONE A DAY ON AN EMPTY STOMACH. THIS IS TO ...)
     Route: 065
     Dates: start: 20200626
  21. ACETAMINOPHEN [Concomitant]
     Active Substance: ACETAMINOPHEN
     Indication: Ill-defined disorder
     Dosage: UNK, QID (TWO FOUR TIMES DAILY)
     Route: 065
     Dates: start: 20201217
  22. LANSOPRAZOLE [Concomitant]
     Active Substance: LANSOPRAZOLE
     Indication: Ill-defined disorder
     Dosage: UNK, BID (TAKE ONE TWICE A DAY)
     Route: 065
     Dates: start: 20201229
  23. CARBOCYSTEINE [Concomitant]
     Active Substance: CARBOCYSTEINE
     Indication: Ill-defined disorder
     Dosage: UNK, TID (TAKE TWO THREE TIMES A DAY FOR 6-8 WEEKS, THEN ...)
     Route: 065
     Dates: start: 20221102
  24. DEXTROSE [Concomitant]
     Active Substance: DEXTROSE MONOHYDRATE
     Indication: Ill-defined disorder
     Dosage: UNK, PRN (USE AS DIRECTED)
     Route: 065
     Dates: start: 20240304
  25. BUDESONIDE\FORMOTEROL [Concomitant]
     Active Substance: BUDESONIDE\FORMOTEROL
     Indication: Ill-defined disorder
     Dosage: UNK, BID (TWO INHALATIONS TWICE DAILY AND WHEN REQUIRED (...)
     Dates: start: 20240404

REACTIONS (1)
  - Trigeminal neuralgia [Recovered/Resolved]

NARRATIVE: CASE EVENT DATE: 20240415
